FAERS Safety Report 7465053-5 (Version None)
Quarter: 2011Q2

REPORT INFORMATION
  Report Type: 
  Country: None (occurrence: None)
  Receive Date: 20110509
  Receipt Date: 20110503
  Transmission Date: 20111010
  Serious: Yes (Other)
  Sender: FDA-Public Use
  Company Number: US-B.I. PHARMACEUTICALS,INC./RIDGEFIELD-2009-BP-02119BP

PATIENT
  Sex: Male

DRUGS (8)
  1. PLAVIX [Concomitant]
     Indication: CORONARY ARTERY STENOSIS
     Dosage: 75 MG
  2. ZANTAC [Concomitant]
     Indication: GASTROOESOPHAGEAL REFLUX DISEASE
  3. LIPITOR [Concomitant]
     Indication: CORONARY ARTERY STENOSIS
     Dosage: 20 MG
  4. ADVAIR DISKUS 100/50 [Concomitant]
     Indication: QUALITY OF LIFE DECREASED
  5. METOPROLOL [Concomitant]
     Indication: HYPERTENSION
     Route: 048
  6. SPIRIVA [Suspect]
     Indication: QUALITY OF LIFE DECREASED
     Dosage: 18 MCG
     Route: 055
     Dates: start: 20081201
  7. ASTELIN [Concomitant]
     Indication: RHINITIS PROPHYLAXIS
  8. COUMADIN [Concomitant]
     Route: 048

REACTIONS (7)
  - DYSPNOEA [None]
  - CHEST DISCOMFORT [None]
  - NASOPHARYNGITIS [None]
  - MUSCULAR WEAKNESS [None]
  - HYPERSOMNIA [None]
  - RHINORRHOEA [None]
  - STENT PLACEMENT [None]
